FAERS Safety Report 11915376 (Version 1)
Quarter: 2016Q1

REPORT INFORMATION
  Report Type: Report from Study
  Country: CA (occurrence: CA)
  Receive Date: 20160114
  Receipt Date: 20160114
  Transmission Date: 20160526
  Serious: Yes (Death)
  Sender: FDA-Public Use
  Company Number: CA-AMGEN-CANSL2016002693

PATIENT
  Age: 62 Year
  Sex: Male

DRUGS (1)
  1. NEUPOGEN [Suspect]
     Active Substance: FILGRASTIM
     Indication: PRODUCT USED FOR UNKNOWN INDICATION
     Dosage: 1.6 ML/480 MCG, UNK
     Route: 065
     Dates: start: 20150529

REACTIONS (1)
  - Death [Fatal]

NARRATIVE: CASE EVENT DATE: 20151216
